FAERS Safety Report 20377544 (Version 2)
Quarter: 2022Q1

REPORT INFORMATION
  Report Type: Spontaneous
  Country: US (occurrence: US)
  Receive Date: 20220126
  Receipt Date: 20220126
  Transmission Date: 20220423
  Serious: No
  Sender: FDA-Public Use
  Company Number: US-ALLERGAN-2130986US

PATIENT
  Sex: Female

DRUGS (4)
  1. UBRELVY [Suspect]
     Active Substance: UBROGEPANT
     Indication: Headache
     Dosage: 50 MG, PRN
  2. UBRELVY [Suspect]
     Active Substance: UBROGEPANT
     Indication: Headache
     Dosage: 100 UNITS, PRN
  3. ALPRAZOLAM [Concomitant]
     Active Substance: ALPRAZOLAM
     Indication: Stress
  4. ALPRAZOLAM [Concomitant]
     Active Substance: ALPRAZOLAM
     Indication: Anxiety

REACTIONS (4)
  - Wrong technique in product usage process [Unknown]
  - Product administration interrupted [Unknown]
  - Headache [Unknown]
  - Therapeutic response decreased [Unknown]
